FAERS Safety Report 4660339-1 (Version None)
Quarter: 2005Q2

REPORT INFORMATION
  Report Type: 
  Country: None (occurrence: None)
  Receive Date: 20050427
  Receipt Date: 20050321
  Transmission Date: 20051028
  Serious: No
  Sender: FDA-Public Use
  Company Number: 213288

PATIENT
  Age: 45 Year
  Sex: Male
  Weight: 86.2 kg

DRUGS (4)
  1. XOLAIR [Suspect]
     Indication: ASTHMA
     Dosage: 150 MG, 1/MONTH, SUBCUTANEOUS
     Route: 058
     Dates: start: 20040527
  2. ALBUTEROL (ALBUTEROL, ALBUTEROL SULFATE) [Concomitant]
  3. ZYRTEC [Concomitant]
  4. ADVAIR (FLUTICASONE PROPIONATE, SALMETEROL XINAFOATE) [Concomitant]

REACTIONS (1)
  - VITILIGO [None]
